FAERS Safety Report 7276491-8 (Version None)
Quarter: 2011Q1

REPORT INFORMATION
  Report Type: 
  Country: None (occurrence: None)
  Receive Date: 20110204
  Receipt Date: 20110125
  Transmission Date: 20110831
  Serious: Yes (Hospitalization)
  Sender: FDA-Public Use
  Company Number: TW-WATSON-2011-01131

PATIENT
  Age: 30 Year
  Sex: Male

DRUGS (3)
  1. CHLORPROMAZINE HCL [Suspect]
     Indication: BIPOLAR DISORDER
     Dosage: 200 - 400 MG, DAILY
     Route: 065
     Dates: start: 20060501
  2. LAMOTRIGINE [Suspect]
     Indication: BIPOLAR DISORDER
     Dosage: 100 MG, BID
     Route: 065
     Dates: start: 20060501
  3. CHLORPROMAZINE HCL [Suspect]
     Dosage: 200 MG, QHS
     Route: 065
     Dates: start: 20060501

REACTIONS (1)
  - TOXIC EPIDERMAL NECROLYSIS [None]
